FAERS Safety Report 10597001 (Version 4)
Quarter: 2017Q2

REPORT INFORMATION
  Report Type: Report from Study
  Country: DE (occurrence: DE)
  Receive Date: 20141120
  Receipt Date: 20170417
  Transmission Date: 20170829
  Serious: Yes (Death, Life-Threatening, Other)
  Sender: FDA-Public Use
  Company Number: DE-ROCHE-1224827

PATIENT
  Sex: Female

DRUGS (32)
  1. CYTARABIN [Suspect]
     Active Substance: CYTARABINE
     Indication: MALIGNANT LYMPHOID NEOPLASM
     Dosage: FIRST CYCLE
     Route: 042
     Dates: start: 20130115
  2. VINCRISTIN [Suspect]
     Active Substance: VINCRISTINE
     Dosage: DAY 94
     Route: 042
     Dates: start: 20121128
  3. EVEROLIMUS [Suspect]
     Active Substance: EVEROLIMUS
     Indication: MALIGNANT LYMPHOID NEOPLASM
     Dosage: GIVEN UNTIL DAY 146 OF THE THERAPY
     Route: 065
  4. CYCLOPHOSPHAMIDE. [Suspect]
     Active Substance: CYCLOPHOSPHAMIDE
     Indication: MALIGNANT LYMPHOID NEOPLASM
     Dosage: DAY 50
     Route: 042
     Dates: start: 20121017
  5. CYCLOPHOSPHAMIDE. [Suspect]
     Active Substance: CYCLOPHOSPHAMIDE
     Indication: POST TRANSPLANT LYMPHOPROLIFERATIVE DISORDER
     Dosage: DAYS 72
     Route: 042
     Dates: start: 20121107
  6. CYCLOPHOSPHAMIDE. [Suspect]
     Active Substance: CYCLOPHOSPHAMIDE
     Dosage: DAY 116
     Route: 042
     Dates: start: 20121219
  7. RITUXIMAB [Suspect]
     Active Substance: RITUXIMAB
     Indication: POST TRANSPLANT LYMPHOPROLIFERATIVE DISORDER
     Dosage: DAYS 72
     Route: 042
     Dates: start: 20121107
  8. RITUXIMAB [Suspect]
     Active Substance: RITUXIMAB
     Dosage: FIRST CYCLE
     Route: 042
     Dates: start: 20130115
  9. VINCRISTIN [Suspect]
     Active Substance: VINCRISTINE
     Dosage: DAY 116
     Route: 042
     Dates: start: 20121219
  10. DOXORUBICIN [Suspect]
     Active Substance: DOXORUBICIN
     Dosage: DAY 94
     Route: 042
     Dates: start: 20121128
  11. PROGRAF [Suspect]
     Active Substance: TACROLIMUS\TACROLIMUS ANHYDROUS
     Indication: MALIGNANT LYMPHOID NEOPLASM
     Dosage: GIVEN UNTIL DAY 146 OF THE THERAPY
     Route: 065
  12. CYTARABIN [Suspect]
     Active Substance: CYTARABINE
     Dosage: SECOND CYCLE
     Route: 042
     Dates: start: 20130211
  13. THIOTEPA. [Suspect]
     Active Substance: THIOTEPA
     Route: 042
     Dates: start: 20130211
  14. METHOTREXATE. [Suspect]
     Active Substance: METHOTREXATE
     Route: 037
     Dates: start: 20130211
  15. DOXORUBICIN [Suspect]
     Active Substance: DOXORUBICIN
     Dosage: DAY 116
     Route: 042
     Dates: start: 20121219
  16. CYTARABIN [Suspect]
     Active Substance: CYTARABINE
     Dosage: SECOND CYCLE
     Route: 037
     Dates: start: 20130211
  17. CYCLOPHOSPHAMIDE. [Suspect]
     Active Substance: CYCLOPHOSPHAMIDE
     Dosage: DAYS 94
     Route: 042
     Dates: start: 20121128
  18. PREDNISOLON [Suspect]
     Active Substance: PREDNISOLONE
     Indication: MALIGNANT LYMPHOID NEOPLASM
     Dosage: DAY 50
     Route: 048
     Dates: start: 20121017
  19. PREDNISOLON [Suspect]
     Active Substance: PREDNISOLONE
     Dosage: DAY 94
     Route: 048
     Dates: start: 20121128
  20. RITUXIMAB [Suspect]
     Active Substance: RITUXIMAB
     Dosage: DAY 94
     Route: 042
     Dates: start: 20121128
  21. RITUXIMAB [Suspect]
     Active Substance: RITUXIMAB
     Dosage: DAY 116
     Route: 042
     Dates: start: 20121219
  22. RITUXIMAB [Suspect]
     Active Substance: RITUXIMAB
     Dosage: SECOND CYCLE
     Route: 042
     Dates: start: 20130211
  23. THIOTEPA. [Suspect]
     Active Substance: THIOTEPA
     Indication: MALIGNANT LYMPHOID NEOPLASM
     Dosage: FIRST CYCLE
     Route: 042
     Dates: start: 20130115
  24. VINCRISTIN [Suspect]
     Active Substance: VINCRISTINE
     Indication: POST TRANSPLANT LYMPHOPROLIFERATIVE DISORDER
     Dosage: DAYS 72
     Route: 042
     Dates: start: 20121107
  25. DOXORUBICIN [Suspect]
     Active Substance: DOXORUBICIN
     Indication: MALIGNANT LYMPHOID NEOPLASM
     Dosage: DAY 50
     Route: 042
     Dates: start: 20121017
  26. DOXORUBICIN [Suspect]
     Active Substance: DOXORUBICIN
     Indication: POST TRANSPLANT LYMPHOPROLIFERATIVE DISORDER
     Dosage: DAY 72
     Route: 065
     Dates: start: 20121107
  27. PREDNISOLON [Suspect]
     Active Substance: PREDNISOLONE
     Indication: POST TRANSPLANT LYMPHOPROLIFERATIVE DISORDER
     Dosage: DAY 72
     Route: 048
     Dates: start: 20121107
  28. RITUXIMAB [Suspect]
     Active Substance: RITUXIMAB
     Indication: CENTRAL NERVOUS SYSTEM LYMPHOMA
     Dosage: DAY 50
     Route: 042
     Dates: start: 20121017
  29. CYTARABIN [Suspect]
     Active Substance: CYTARABINE
     Dosage: FIRST CYCLE
     Route: 037
     Dates: start: 20130115
  30. METHOTREXATE. [Suspect]
     Active Substance: METHOTREXATE
     Indication: MALIGNANT LYMPHOID NEOPLASM
     Dosage: FIRST CYCLE STARTED ON 11/JAN/2013
     Route: 037
  31. VINCRISTIN [Suspect]
     Active Substance: VINCRISTINE
     Indication: MALIGNANT LYMPHOID NEOPLASM
     Dosage: DAY 50
     Route: 042
     Dates: start: 20121017
  32. PREDNISOLON [Suspect]
     Active Substance: PREDNISOLONE
     Dosage: DAY 116
     Route: 048
     Dates: start: 20121219

REACTIONS (11)
  - Neutropenic sepsis [Fatal]
  - Platelet count decreased [Unknown]
  - Central nervous system fungal infection [Fatal]
  - Haemoglobin decreased [Unknown]
  - Febrile neutropenia [Unknown]
  - Meningitis [Fatal]
  - Multiple organ dysfunction syndrome [Fatal]
  - Respiratory failure [Fatal]
  - White blood cell count decreased [Unknown]
  - Stomatitis [Unknown]
  - Nausea [Recovered/Resolved]

NARRATIVE: CASE EVENT DATE: 20121022
